FAERS Safety Report 4680278-X (Version None)
Quarter: 2005Q2

REPORT INFORMATION
  Report Type: 
  Country: None (occurrence: None)
  Receive Date: 20050601
  Receipt Date: 20050525
  Transmission Date: 20051028
  Serious: Yes (Hospitalization, Disabling)
  Sender: FDA-Public Use
  Company Number: GBS050517402

PATIENT
  Age: 34 Year
  Sex: Female
  Weight: 90 kg

DRUGS (3)
  1. CYMBALTA [Suspect]
     Indication: DEPRESSION
     Dosage: 60 MG/1 DAY
     Dates: start: 20050425
  2. ZOPICLONE [Concomitant]
  3. AMITRIPTYLINE [Concomitant]

REACTIONS (3)
  - HYPERSENSITIVITY [None]
  - MYALGIA [None]
  - STEVENS-JOHNSON SYNDROME [None]
